FAERS Safety Report 9382738 (Version 2)
Quarter: 2013Q3

REPORT INFORMATION
  Report Type: Spontaneous
  Country: GR (occurrence: GR)
  Receive Date: 20130703
  Receipt Date: 20130827
  Transmission Date: 20140515
  Serious: Yes (Other)
  Sender: FDA-Public Use
  Company Number: GR-ABBOTT-13P-066-1114731-00

PATIENT
  Sex: 0

DRUGS (5)
  1. CYCLOSPORINE [Suspect]
     Indication: IMMUNOSUPPRESSION
     Dosage: 2-3 MG/KG/DAY, ADJUSTED TO TROUGH FOR 18 MONTHS
  2. CYCLOSPORINE [Suspect]
     Dosage: REDUCED BY 0.5 MG/KG/DAY
  3. PREDNISOLONE [Suspect]
     Indication: IMMUNOSUPPRESSION
     Dosage: STARTING DOSE 0.5 MG/KG/DAY
  4. PREDNISOLONE [Suspect]
     Dosage: REDUCED TO 5 MG/KG ON ALTERNATE DAYS AT 12 MON
  5. PREDNISOLONE [Suspect]
     Dosage: DISCONTINUED AT 18 MONTHS

REACTIONS (2)
  - Blood creatinine increased [Unknown]
  - Renal failure chronic [Unknown]
